FAERS Safety Report 9035350 (Version 1)
Quarter: 2013Q1

REPORT INFORMATION
  Report Type: Report from Study
  Country: US (occurrence: US)
  Receive Date: 20130129
  Receipt Date: 20130129
  Transmission Date: 20140127
  Serious: No
  Sender: FDA-Public Use
  Company Number: US-ABBOTT-12P-163-0894897-00

PATIENT
  Age: 40 Year
  Sex: Female

DRUGS (14)
  1. HUMIRA 40 MG/0.8 ML PEN [Suspect]
     Indication: RHEUMATOID ARTHRITIS
     Dates: start: 20120111
  2. METHOTREXATE [Concomitant]
     Indication: PRODUCT USED FOR UNKNOWN INDICATION
  3. PREDNISONE [Concomitant]
     Indication: PRODUCT USED FOR UNKNOWN INDICATION
     Dosage: 10 MG DAILY
  4. VISTARIL [Concomitant]
     Indication: INSOMNIA
     Dosage: 25 MG DAILY
  5. VISTARIL [Concomitant]
     Indication: ANXIETY
  6. VISTARIL [Concomitant]
     Indication: PAIN
  7. OXYCODONE [Concomitant]
     Indication: PAIN
  8. NEURONTIN [Concomitant]
     Indication: PAIN
  9. TOPAMAX [Concomitant]
     Indication: PAIN
     Dosage: 25 MG DAILY
  10. ALBUTEROL [Concomitant]
     Indication: ASTHMA
     Route: 055
  11. ZYRTEC [Concomitant]
     Indication: SEASONAL ALLERGY
     Dosage: 10 MG DAILY
  12. ATROVENT [Concomitant]
     Indication: ASTHMA
     Route: 055
  13. SYMBICORT [Concomitant]
     Indication: CHRONIC OBSTRUCTIVE PULMONARY DISEASE
     Dosage: NEBULIZER DAILY
  14. FOLIC ACID [Concomitant]
     Indication: PRODUCT USED FOR UNKNOWN INDICATION
     Dosage: 1 MG DAILY

REACTIONS (3)
  - Headache [Recovered/Resolved]
  - Visual impairment [Recovered/Resolved]
  - Headache [Recovered/Resolved]
